FAERS Safety Report 13571290 (Version 1)
Quarter: 2017Q2

REPORT INFORMATION
  Report Type: Spontaneous
  Country: US (occurrence: US)
  Receive Date: 20170522
  Receipt Date: 20170522
  Transmission Date: 20170830
  Serious: Yes (Other)
  Sender: FDA-Public Use
  Company Number: None

PATIENT
  Age: 8 Year
  Sex: Male
  Weight: 53.3 kg

DRUGS (2)
  1. INTUNIV 3MG GENERIC FORM GUANFACINE [Suspect]
     Active Substance: GUANFACINE HYDROCHLORIDE
     Indication: CONDUCT DISORDER
     Route: 048
     Dates: start: 20150211, end: 20160829
  2. INTUNIV 3MG GENERIC FORM GUANFACINE [Suspect]
     Active Substance: GUANFACINE HYDROCHLORIDE
     Indication: ATTENTION DEFICIT/HYPERACTIVITY DISORDER
     Route: 048
     Dates: start: 20150211, end: 20160829

REACTIONS (3)
  - Fatigue [None]
  - Drug ineffective [None]
  - Weight increased [None]

NARRATIVE: CASE EVENT DATE: 20161221
